FAERS Safety Report 16691447 (Version 1)
Quarter: 2019Q3

REPORT INFORMATION
  Report Type: Spontaneous
  Country: US (occurrence: US)
  Receive Date: 20190624
  Receipt Date: 20190624
  Transmission Date: 20191004
  Serious: Yes (Other)
  Sender: FDA-Public Use
  Company Number: None

PATIENT
  Age: 78 Year
  Sex: Female
  Weight: 54.88 kg

DRUGS (10)
  1. B16 [Concomitant]
  2. VITAMIN E [Concomitant]
     Active Substance: .ALPHA.-TOCOPHEROL
  3. UBIQUINONE [Concomitant]
     Active Substance: UBIDECARENONE
  4. ZINC. [Concomitant]
     Active Substance: ZINC
  5. VIT D [Concomitant]
     Active Substance: VITAMIN D NOS
  6. BETA CAROTENE. [Concomitant]
     Active Substance: BETA CAROTENE
  7. LUTEIN [Concomitant]
     Active Substance: LUTEIN
  8. VITAMIN C [Concomitant]
     Active Substance: ASCORBIC ACID
  9. SILVER SULFADIAZINE CREAM [Suspect]
     Active Substance: SILVER SULFADIAZINE
     Indication: THERMAL BURN
     Dates: start: 201905
  10. VITAMIN B12 [Concomitant]
     Active Substance: CYANOCOBALAMIN

REACTIONS (2)
  - Posture abnormal [None]
  - Balance disorder [None]

NARRATIVE: CASE EVENT DATE: 20190529
